FAERS Safety Report 6825852-7 (Version None)
Quarter: 2010Q3

REPORT INFORMATION
  Report Type: 
  Country: None (occurrence: None)
  Receive Date: 20100707
  Receipt Date: 20100707
  Transmission Date: 20110219
  Serious: Yes (Disabling, Other)
  Sender: FDA-Public Use
  Company Number: None

PATIENT
  Sex: Male
  Weight: 78.9259 kg

DRUGS (1)
  1. OMEPRAZOLE [Suspect]

REACTIONS (12)
  - ASTHENIA [None]
  - BURNING SENSATION [None]
  - DRY MOUTH [None]
  - DYSPHONIA [None]
  - GINGIVAL DISORDER [None]
  - POLLAKIURIA [None]
  - POOR QUALITY SLEEP [None]
  - TINNITUS [None]
  - TOOTH DISORDER [None]
  - TOOTH LOSS [None]
  - URINE ODOUR ABNORMAL [None]
  - VISION BLURRED [None]
